FAERS Safety Report 12946828 (Version 1)
Quarter: 2016Q4

REPORT INFORMATION
  Report Type: Spontaneous
  Country: CA (occurrence: CA)
  Receive Date: 20161116
  Receipt Date: 20161116
  Transmission Date: 20170207
  Serious: Yes (Other)
  Sender: FDA-Public Use
  Company Number: CA-GLAXOSMITHKLINE-CA2016GSK166510

PATIENT
  Age: 60 Year
  Sex: Male

DRUGS (2)
  1. ROSIGLITAZONE [Suspect]
     Active Substance: ROSIGLITAZONE
     Indication: PRODUCT USED FOR UNKNOWN INDICATION
  2. ATORVASTATIN [Suspect]
     Active Substance: ATORVASTATIN
     Indication: PRODUCT USED FOR UNKNOWN INDICATION

REACTIONS (3)
  - Drug interaction [Unknown]
  - Immune-mediated necrotising myopathy [Unknown]
  - Myopathy [Unknown]
